FAERS Safety Report 5651831-1 (Version None)
Quarter: 2008Q1

REPORT INFORMATION
  Report Type: 
  Country: None (occurrence: None)
  Receive Date: 20080305
  Receipt Date: 20080226
  Transmission Date: 20080703
  Serious: Yes (Hospitalization, Other)
  Sender: FDA-Public Use
  Company Number: US-PFIZER INC-2008012280

PATIENT
  Sex: Female
  Weight: 95.7 kg

DRUGS (5)
  1. LIPITOR [Suspect]
     Indication: DYSLIPIDAEMIA
     Route: 048
     Dates: start: 20010201, end: 20031101
  2. LIPITOR [Suspect]
     Indication: CORONARY ARTERY DISEASE
     Route: 048
     Dates: start: 20031101, end: 20080118
  3. TOPROL [Concomitant]
  4. ASPIRIN [Concomitant]
  5. NIASPAN [Concomitant]

REACTIONS (6)
  - ARTERIAL DISORDER [None]
  - BREAST CANCER [None]
  - ELECTIVE SURGERY [None]
  - HEPATIC ENZYME INCREASED [None]
  - ISCHAEMIA [None]
  - PAIN [None]
